FAERS Safety Report 7973556-X (Version None)
Quarter: 2011Q4

REPORT INFORMATION
  Report Type: 
  Country: None (occurrence: None)
  Receive Date: 20111213
  Receipt Date: 20111201
  Transmission Date: 20120403
  Serious: Yes (Hospitalization)
  Sender: FDA-Public Use
  Company Number: US-SHIRE-ALL1-2011-04774

PATIENT
  Sex: Male

DRUGS (1)
  1. VPRIV [Suspect]
     Indication: GAUCHER'S DISEASE
     Dosage: 5000 IU, 1X/2WKS
     Route: 041
     Dates: start: 20100604

REACTIONS (3)
  - CELLULITIS [None]
  - FALL [None]
  - LACERATION [None]
